FAERS Safety Report 12119562 (Version 1)
Quarter: 2016Q1

REPORT INFORMATION
  Report Type: Spontaneous
  Country: US (occurrence: None)
  Receive Date: 20160225
  Receipt Date: 20160225
  Transmission Date: 20160526
  Serious: Yes (Hospitalization)
  Sender: FDA-Public Use
  Company Number: None

PATIENT
  Age: 58 Year
  Sex: Male
  Weight: 52.08 kg

DRUGS (1)
  1. MEMANTINE HYDROCHLORIDE [Suspect]
     Active Substance: MEMANTINE HYDROCHLORIDE
     Dates: start: 20151111, end: 20160117

REACTIONS (9)
  - Nausea [None]
  - Pneumonia [None]
  - Asthenia [None]
  - Blood lactic acid increased [None]
  - Haemoglobin decreased [None]
  - Vomiting [None]
  - Sepsis [None]
  - Fatigue [None]
  - Hypotension [None]

NARRATIVE: CASE EVENT DATE: 20160117
